FAERS Safety Report 8548816-4 (Version None)
Quarter: 2012Q3

REPORT INFORMATION
  Report Type: 
  Country: None (occurrence: None)
  Receive Date: 20120730
  Receipt Date: 20120723
  Transmission Date: 20120928
  Serious: Yes (Hospitalization)
  Sender: FDA-Public Use
  Company Number: DE-UCBSA-013425

PATIENT
  Age: 77 Year
  Sex: Female
  Weight: 61 kg

DRUGS (17)
  1. NEUPRO [Suspect]
     Indication: PARKINSON'S DISEASE
     Route: 062
     Dates: start: 20100409, end: 20100505
  2. ISOSORBIDE DINITRATE [Suspect]
     Indication: HYPERTENSION
     Dates: start: 20100520, end: 20100609
  3. PANTOPRAZOLE [Concomitant]
     Indication: GASTRITIS
  4. RAMIPRIL [Concomitant]
     Indication: HYPERTENSION
     Dates: end: 20100520
  5. DIOVAN [Suspect]
     Indication: HYPERTENSION
     Dates: start: 20100520
  6. ASPIRIN [Suspect]
     Indication: CARDIAC DISORDER
  7. FELOPUREN [Concomitant]
     Indication: HYPERTENSION
     Dates: end: 20100520
  8. NEUPRO [Suspect]
     Route: 062
     Dates: start: 20100528
  9. TORSEMIDE [Suspect]
     Indication: HYPERTENSION
  10. DIGITOXIN TAB [Suspect]
     Indication: CARDIAC DISORDER
  11. FALITHROM [Suspect]
     Indication: CARDIAC FAILURE
     Dates: start: 20100520, end: 20100609
  12. SIMVASTATIN [Concomitant]
     Indication: BLOOD CHOLESTEROL INCREASED
  13. ALLOPURINOL [Concomitant]
     Indication: GOUT
     Dosage: 1/2 DAY
  14. NEPHROTRANS [Concomitant]
     Indication: RENAL FAILURE
     Dates: start: 20100520
  15. BISOPROLOL FUMARATE [Suspect]
     Indication: ARRHYTHMIA
  16. VALPROATE SODIUM [Concomitant]
     Indication: EPILEPSY
     Dates: start: 20081001
  17. NEUPRO [Suspect]
     Route: 062
     Dates: start: 20100506, end: 20100527

REACTIONS (3)
  - DYSPNOEA [None]
  - LOSS OF CONSCIOUSNESS [None]
  - CARDIAC FAILURE [None]
